FAERS Safety Report 5627586-3 (Version None)
Quarter: 2008Q1

REPORT INFORMATION
  Report Type: 
  Country: None (occurrence: None)
  Receive Date: 20080214
  Receipt Date: 20080214
  Transmission Date: 20080703
  Serious: Yes (Life-Threatening)
  Sender: FDA-Public Use
  Company Number: None

PATIENT
  Sex: Female
  Weight: 56.6996 kg

DRUGS (1)
  1. DURAGESIC-75 [Suspect]
     Indication: PAIN
     Dosage: 75MCG EVERY 3 DAYS TRANSDERMAL
     Route: 062

REACTIONS (3)
  - MALAISE [None]
  - PALPITATIONS [None]
  - TREMOR [None]
